FAERS Safety Report 9183705 (Version 1)
Quarter: 2012Q4

REPORT INFORMATION
  Report Type: 
  Country: FR (occurrence: FR)
  Receive Date: 20121101
  Receipt Date: 20121101
  Transmission Date: 20130627
  Serious: Yes (Hospitalization)
  Sender: FDA-Public Use
  Company Number: FR-PFIZER INC-2012267446

PATIENT
  Age: 58 Year
  Sex: Male

DRUGS (4)
  1. TRIFLUCAN [Suspect]
     Indication: ESOPHAGEAL MUCOSITIS
     Dosage: 1 DF, 1x/day
     Route: 048
     Dates: start: 20110411, end: 20110415
  2. MONO TILDIEM [Suspect]
     Indication: ATRIAL FIBRILLATION
     Dosage: 1 DF, 1x/day
     Route: 048
     Dates: start: 20110401, end: 20110415
  3. HEMIGOXINE [Concomitant]
     Indication: ATRIAL FIBRILLATION
     Dosage: UNK
     Dates: start: 20110401
  4. CORDARONE [Concomitant]
     Indication: CARDIOVERSION

REACTIONS (9)
  - Rash maculo-papular [Recovered/Resolved]
  - Purpura [Recovered/Resolved]
  - Dermatitis bullous [Recovered/Resolved]
  - Toxic skin eruption [Recovered/Resolved]
  - Angina pectoris [None]
  - Dyspnoea [None]
  - Rash pruritic [None]
  - Rash generalised [None]
  - Blister [None]
